FAERS Safety Report 12367106 (Version 2)
Quarter: 2017Q1

REPORT INFORMATION
  Report Type: Spontaneous
  Country: US (occurrence: US)
  Receive Date: 20160513
  Receipt Date: 20170320
  Transmission Date: 20170428
  Serious: Yes (Other)
  Sender: FDA-Public Use
  Company Number: US-JNJFOC-20160419872

PATIENT
  Sex: Male

DRUGS (3)
  1. INVEGA [Suspect]
     Active Substance: PALIPERIDONE
     Indication: SCHIZOPHRENIA
     Dosage: DOSE VARYING FROM 2 TO 4 MG
     Route: 048
     Dates: start: 2007, end: 2008
  2. RISPERDAL [Suspect]
     Active Substance: RISPERIDONE
     Indication: SCHIZOPHRENIA
     Route: 048
     Dates: start: 2003, end: 2005
  3. RISPERDAL [Suspect]
     Active Substance: RISPERIDONE
     Indication: SCHIZOPHRENIA
     Route: 048
     Dates: start: 19980703

REACTIONS (2)
  - Obesity [Unknown]
  - Gynaecomastia [Recovering/Resolving]

NARRATIVE: CASE EVENT DATE: 1998
